FAERS Safety Report 17238891 (Version 5)
Quarter: 2020Q1

REPORT INFORMATION
  Report Type: Spontaneous
  Country: US (occurrence: US)
  Receive Date: 20200106
  Receipt Date: 20200311
  Transmission Date: 20200409
  Serious: Yes (Other)
  Sender: FDA-Public Use
  Company Number: US-SA-2019SA194791

PATIENT
  Age: 4 Year
  Sex: Female

DRUGS (1)
  1. LANTUS [Suspect]
     Active Substance: INSULIN GLARGINE
     Indication: TYPE 1 DIABETES MELLITUS
     Dosage: 3-4 UNITS QD
     Route: 065
     Dates: start: 201907

REACTIONS (1)
  - Diabetes mellitus inadequate control [Not Recovered/Not Resolved]
